FAERS Safety Report 11369094 (Version 1)
Quarter: 2015Q3

REPORT INFORMATION
  Report Type: Spontaneous
  Country: US (occurrence: US)
  Receive Date: 20150812
  Receipt Date: 20150812
  Transmission Date: 20151125
  Serious: No
  Sender: FDA-Public Use
  Company Number: US-ELI_LILLY_AND_COMPANY-US201508001392

PATIENT
  Sex: Female

DRUGS (6)
  1. ATENOL [Concomitant]
     Active Substance: ATENOLOL
  2. FORTEO [Suspect]
     Active Substance: TERIPARATIDE
     Indication: PRODUCT USED FOR UNKNOWN INDICATION
     Dosage: 20 UG, QD
     Route: 065
     Dates: start: 201407
  3. TUSSIONEX                          /00004701/ [Concomitant]
  4. LOSARLAN [Concomitant]
     Indication: PRODUCT USED FOR UNKNOWN INDICATION
     Dosage: UNK UNK, UNKNOWN
  5. LORATADINE. [Concomitant]
     Active Substance: LORATADINE
  6. ECOMER [Concomitant]

REACTIONS (2)
  - Creatinine renal clearance increased [Not Recovered/Not Resolved]
  - Blood calcium increased [Not Recovered/Not Resolved]
